FAERS Safety Report 4381934-3 (Version None)
Quarter: 2004Q2

REPORT INFORMATION
  Report Type: 
  Country: None (occurrence: None)
  Receive Date: 20040615
  Receipt Date: 20040602
  Transmission Date: 20050107
  Serious: Yes (Hospitalization)
  Sender: FDA-Public Use
  Company Number: 2004037147

PATIENT
  Age: 72 Year
  Sex: Male

DRUGS (2)
  1. ZITHROMAX [Suspect]
     Indication: INFECTION PROPHYLAXIS
     Dosage: 500 MG (1 D) ORAL
     Route: 048
     Dates: start: 20040601, end: 20040601
  2. MEFENAMIC ACID [Concomitant]

REACTIONS (1)
  - SHOCK [None]
